FAERS Safety Report 5106660-4 (Version None)
Quarter: 2006Q3

REPORT INFORMATION
  Report Type: 
  Country: None (occurrence: None)
  Receive Date: 20060918
  Receipt Date: 20060908
  Transmission Date: 20061208
  Serious: Yes (Hospitalization)
  Sender: FDA-Public Use
  Company Number: GB-JNJFOC-20060705575

PATIENT
  Sex: Male

DRUGS (5)
  1. RISPERDAL CONSTA [Suspect]
     Route: 030
  2. RISPERDAL CONSTA [Suspect]
     Indication: SCHIZOAFFECTIVE DISORDER
     Dosage: 3-4 WEEKS
     Route: 030
  3. SODIUM VALPORATE [Suspect]
     Indication: SCHIZOAFFECTIVE DISORDER
     Route: 065
  4. LORAZEPAM [Suspect]
     Indication: AGITATION
     Dosage: 1- 2 MG AS NEEDED
     Route: 065
  5. PIPORTIL DEPOT [Concomitant]
     Indication: SCHIZOAFFECTIVE DISORDER
     Route: 065

REACTIONS (3)
  - CONDITION AGGRAVATED [None]
  - RASH ERYTHEMATOUS [None]
  - VASCULITIS [None]
